FAERS Safety Report 8604801-5 (Version None)
Quarter: 2012Q3

REPORT INFORMATION
  Report Type: 
  Country: None (occurrence: None)
  Receive Date: 20120820
  Receipt Date: 20120808
  Transmission Date: 20120928
  Serious: Yes (Hospitalization, Other)
  Sender: FDA-Public Use
  Company Number: US-ELI_LILLY_AND_COMPANY-US201204001157

PATIENT
  Sex: Female

DRUGS (23)
  1. OMEPRAZOLE [Concomitant]
     Dosage: 20 MG, EVERY 6 HRS
  2. CIPROFLOXACIN HCL [Concomitant]
     Indication: INFECTION
     Dosage: 500 MG, PRN
  3. VITAMIN B-12 [Concomitant]
     Dosage: 2500 MG, QD
  4. CALCIUM [Concomitant]
  5. VICODIN [Concomitant]
     Dosage: UNK, EVERY 6 HRS
  6. SOMA [Concomitant]
     Dosage: 350 MG, EVERY 6 HRS
  7. ASTELIN [Concomitant]
     Dosage: 2 DF, BID
  8. FLUTICASONE PROPIONATE [Concomitant]
     Dosage: UNK UNK, PRN
  9. STOOL SOFTENER [Concomitant]
  10. FOLIC ACID [Concomitant]
     Dosage: 800 UG, QD
  11. SOMA [Concomitant]
     Dosage: 350 MG, PRN
  12. SINGULAIR [Concomitant]
     Dosage: 1 DF, QD
  13. ZYRTEC [Concomitant]
     Dosage: 10 MG, QOD
  14. MELOXICAM [Concomitant]
  15. FLONASE [Concomitant]
     Dosage: 2 DF, BID
  16. PROCARDIA                          /00340701/ [Concomitant]
     Dosage: 10 MG, BID
  17. ALBUTEROL [Concomitant]
  18. FIBER [Concomitant]
  19. AZELASTINE HYDROCHLORIDE [Concomitant]
     Dosage: 1 DF, BID
  20. FORTEO [Suspect]
     Indication: OSTEOPOROSIS
     Dosage: 20 UG, QD
     Route: 065
     Dates: start: 20100813
  21. FORTEO [Suspect]
     Dosage: 20 UG, QD
  22. FORTEO [Suspect]
     Dosage: 20 UG, QD
  23. BENADRYL [Concomitant]

REACTIONS (16)
  - HERNIA [None]
  - INTERVERTEBRAL DISC PROTRUSION [None]
  - EXOSTOSIS [None]
  - VISUAL FIELD DEFECT [None]
  - KNEE ARTHROPLASTY [None]
  - MUSCLE SPASMS [None]
  - DYSPNOEA [None]
  - ARTHRALGIA [None]
  - BLINDNESS [None]
  - NERVE INJURY [None]
  - LUMBAR VERTEBRAL FRACTURE [None]
  - ACCIDENT [None]
  - MUSCULOSKELETAL DISCOMFORT [None]
  - MUSCLE DISORDER [None]
  - BURSITIS [None]
  - CATARACT [None]
